FAERS Safety Report 20739357 (Version 1)
Quarter: 2022Q2

REPORT INFORMATION
  Report Type: Report from Study
  Country: CO (occurrence: CO)
  Receive Date: 20220422
  Receipt Date: 20220422
  Transmission Date: 20220721
  Serious: Yes (Hospitalization, Other)
  Sender: FDA-Public Use
  Company Number: CO-ABBVIE-22K-036-4325734-00

PATIENT
  Sex: Female
  Weight: 70 kg

DRUGS (3)
  1. HUMIRA [Suspect]
     Active Substance: ADALIMUMAB
     Indication: Crohn^s disease
     Route: 058
  2. AZATHIOPRINE [Suspect]
     Active Substance: AZATHIOPRINE
     Indication: Pancreatitis
     Route: 048
     Dates: start: 2018, end: 2018
  3. HUMIRA [Suspect]
     Active Substance: ADALIMUMAB
     Indication: Product used for unknown indication
     Route: 058
     Dates: start: 20170418

REACTIONS (8)
  - Pancreatitis [Recovered/Resolved]
  - Crohn^s disease [Recovering/Resolving]
  - Gastrointestinal disorder [Recovering/Resolving]
  - Gastrointestinal disorder [Recovering/Resolving]
  - General physical health deterioration [Recovering/Resolving]
  - Gastritis [Recovering/Resolving]
  - Drug hypersensitivity [Recovered/Resolved]
  - Discomfort [Recovering/Resolving]

NARRATIVE: CASE EVENT DATE: 20180101
